FAERS Safety Report 25821140 (Version 1)
Quarter: 2025Q3

REPORT INFORMATION
  Report Type: Spontaneous
  Country: GB (occurrence: GB)
  Receive Date: 20250919
  Receipt Date: 20250919
  Transmission Date: 20251020
  Serious: No
  Sender: ALKEM
  Company Number: None

PATIENT
  Age: 72 Year
  Sex: Female

DRUGS (11)
  1. DULOXETINE [Suspect]
     Active Substance: DULOXETINE
     Indication: Allodynia
     Route: 065
  2. DULOXETINE [Suspect]
     Active Substance: DULOXETINE
     Indication: Pain
  3. GABAPENTIN [Suspect]
     Active Substance: GABAPENTIN
     Indication: Allodynia
     Route: 065
  4. GABAPENTIN [Suspect]
     Active Substance: GABAPENTIN
     Indication: Pain
  5. CAPSAICIN [Suspect]
     Active Substance: CAPSAICIN
     Indication: Allodynia
     Route: 065
     Dates: start: 2012
  6. CAPSAICIN [Suspect]
     Active Substance: CAPSAICIN
     Indication: Pain
  7. LIDOCAINE [Suspect]
     Active Substance: LIDOCAINE
     Indication: Allodynia
     Route: 061
  8. LIDOCAINE [Suspect]
     Active Substance: LIDOCAINE
     Indication: Pain
  9. TRAMADOL HYDROCHLORIDE [Suspect]
     Active Substance: TRAMADOL HYDROCHLORIDE
     Indication: Allodynia
     Route: 065
     Dates: start: 2025
  10. TRAMADOL HYDROCHLORIDE [Suspect]
     Active Substance: TRAMADOL HYDROCHLORIDE
     Indication: Pain
     Route: 065
  11. ACETAMINOPHEN [Concomitant]
     Active Substance: ACETAMINOPHEN
     Indication: Product used for unknown indication
     Route: 065

REACTIONS (4)
  - Dizziness [Unknown]
  - Somnolence [Unknown]
  - Off label use [Unknown]
  - Therapeutic product effect incomplete [Unknown]
